FAERS Safety Report 4515351-X (Version None)
Quarter: 2004Q4

REPORT INFORMATION
  Report Type: 
  Country: None (occurrence: None)
  Receive Date: 20041029
  Receipt Date: 20040913
  Transmission Date: 20050328
  Serious: No
  Sender: FDA-Public Use
  Company Number: 200416912US

PATIENT
  Age: 37 Year
  Sex: Female

DRUGS (4)
  1. KETEK [Suspect]
     Indication: LYME DISEASE
     Dosage: 400 MG QD PO
     Route: 048
     Dates: start: 20040911, end: 20040911
  2. KETEK [Suspect]
     Indication: LYME DISEASE
     Dosage: 800 MG QD PO
     Route: 048
     Dates: start: 20040912, end: 20040912
  3. KETEK [Suspect]
     Indication: LYME DISEASE
     Dosage: 400 MG QD PO
     Route: 048
     Dates: start: 20040913
  4. OMNICEF [Concomitant]

REACTIONS (6)
  - CHEST PAIN [None]
  - COUGH [None]
  - DIZZINESS [None]
  - DYSPNOEA [None]
  - NIGHTMARE [None]
  - THROAT IRRITATION [None]
